FAERS Safety Report 5602854-X (Version None)
Quarter: 2008Q1

REPORT INFORMATION
  Report Type: 
  Country: None (occurrence: None)
  Receive Date: 20080111
  Receipt Date: 20071019
  Transmission Date: 20080703
  Serious: Yes (Other)
  Sender: FDA-Public Use
  Company Number: HQWYE980312JUL04

PATIENT
  Age: 56 Year
  Sex: Female

DRUGS (4)
  1. PREMPRO [Suspect]
     Dates: start: 19980401, end: 19980501
  2. PREMARIN [Suspect]
     Dates: start: 19940501, end: 19980401
  3. PREMPHASE 14/14 [Suspect]
     Dates: start: 19980501, end: 19990801
  4. PROVERA [Suspect]
     Dates: start: 19940501, end: 19980401

REACTIONS (1)
  - CEREBROVASCULAR ACCIDENT [None]
